FAERS Safety Report 11650575 (Version 1)
Quarter: 2015Q4

REPORT INFORMATION
  Report Type: Spontaneous
  Country: US (occurrence: US)
  Receive Date: 20151021
  Receipt Date: 20151021
  Transmission Date: 20160304
  Serious: No
  Sender: FDA-Public Use
  Company Number: US-NOVOPROD-423814

PATIENT
  Age: 64 Year
  Sex: Female

DRUGS (2)
  1. VAGIFEM LD [Suspect]
     Active Substance: ESTRADIOL
     Indication: HORMONE REPLACEMENT THERAPY
     Dosage: 10 MCG THREE TIMES WEEKLY
     Route: 067
  2. VAGIFEM LD [Suspect]
     Active Substance: ESTRADIOL
     Dosage: 20 MCG THREE TIMES WEEKLY
     Route: 067

REACTIONS (2)
  - Drug ineffective [Recovered/Resolved]
  - Vaginal prolapse [Recovered/Resolved]
